FAERS Safety Report 5384229-4 (Version None)
Quarter: 2007Q3

REPORT INFORMATION
  Report Type: 
  Country: None (occurrence: None)
  Receive Date: 20070709
  Receipt Date: 20060712
  Transmission Date: 20080115
  Serious: Yes (Life-Threatening, Hospitalization)
  Sender: FDA-Public Use
  Company Number: US-2006-013686

PATIENT
  Age: 66 Year
  Sex: Female
  Weight: 97.5 kg

DRUGS (12)
  1. ULTRAVIST 300 [Suspect]
     Indication: CATHETERISATION CARDIAC
     Dates: start: 20060524, end: 20060524
  2. ATENOLOL [Concomitant]
  3. NORVASC [Concomitant]
  4. LISINOPRIL [Concomitant]
  5. ASPIRIN [Concomitant]
  6. PLAVIX [Concomitant]
  7. PROTONIX [Concomitant]
  8. LORAZEPAM [Concomitant]
  9. NITROGLYCERIN [Concomitant]
  10. BENADRYL ^PFIZER WARNER-LAMBERT^ (DIPHENHYDRAMINE HYDROCHLORIDE) [Concomitant]
  11. VALIUM [Concomitant]
  12. SOLU-CORTEF (HYDROCORTISON SODIUM SUCCINATE) [Concomitant]

REACTIONS (3)
  - CHEST PAIN [None]
  - CONTRAST MEDIA REACTION [None]
  - HYPOTENSION [None]
